FAERS Safety Report 6687628-3 (Version None)
Quarter: 2010Q2

REPORT INFORMATION
  Report Type: 
  Country: None (occurrence: None)
  Receive Date: 20100415
  Receipt Date: 20100329
  Transmission Date: 20101027
  Serious: Yes (Life-Threatening, Hospitalization, Disabling)
  Sender: FDA-Public Use
  Company Number: GB-DEXPHARM-2006-1342

PATIENT
  Age: 80 Year
  Sex: Male

DRUGS (6)
  1. RABEPRAZOLE SODIUM [Suspect]
  2. PANTOPRAZOLE [Suspect]
     Indication: GASTROOESOPHAGEAL REFLUX DISEASE
  3. LOSEC I.V. [Suspect]
     Indication: GASTROOESOPHAGEAL REFLUX DISEASE
     Dosage: 40 MG MILLGRAM(S) ORAL
     Route: 048
     Dates: start: 20020101, end: 20060501
  4. LOSEC I.V. [Suspect]
     Indication: GASTROOESOPHAGEAL REFLUX DISEASE
     Dosage: ORAL
     Route: 048
     Dates: start: 20060601
  5. OMEPRAZOLE [Suspect]
     Dosage: MULTIPLE INJECTIONS INTRAVENOUS
     Route: 042
     Dates: start: 20050505, end: 20060617
  6. LANSOPRAZOLE [Suspect]
     Dates: start: 20060725, end: 20060808

REACTIONS (3)
  - HYPOCALCAEMIA [None]
  - HYPOMAGNESAEMIA [None]
  - HYPOPARATHYROIDISM [None]
